FAERS Safety Report 4596830-6 (Version None)
Quarter: 2005Q1

REPORT INFORMATION
  Report Type: 
  Country: None (occurrence: None)
  Receive Date: 20050228
  Receipt Date: 20050213
  Transmission Date: 20050727
  Serious: Yes (Hospitalization, Other)
  Sender: FDA-Public Use
  Company Number: 2004094878

PATIENT
  Age: 67 Year
  Sex: Male

DRUGS (3)
  1. LIPITOR [Suspect]
     Indication: ILL-DEFINED DISORDER
     Dosage: (40 MG)
  2. CELEBREX [Suspect]
     Indication: MYALGIA
  3. INDOMETHACIN [Concomitant]

REACTIONS (6)
  - AMNESIA [None]
  - CEREBROVASCULAR DISORDER [None]
  - DISORIENTATION [None]
  - DRUG INEFFECTIVE [None]
  - MYALGIA [None]
  - PAIN IN EXTREMITY [None]
